FAERS Safety Report 10657920 (Version 2)
Quarter: 2015Q1

REPORT INFORMATION
  Report Type: Spontaneous
  Country: IT (occurrence: IT)
  Receive Date: 20141217
  Receipt Date: 20150114
  Transmission Date: 20150720
  Serious: Yes (Hospitalization)
  Sender: FDA-Public Use
  Company Number: IT-ABBVIE-14P-083-1322122-00

PATIENT
  Age: 30 Year
  Sex: Male

DRUGS (2)
  1. MACLADIN [Suspect]
     Active Substance: CLARITHROMYCIN
     Indication: EAR PAIN
     Route: 048
     Dates: start: 20141001, end: 20141003
  2. MEDROL [Suspect]
     Active Substance: METHYLPREDNISOLONE
     Indication: EAR PAIN
     Route: 048
     Dates: start: 20141001, end: 20141003

REACTIONS (2)
  - Aerophagia [Recovering/Resolving]
  - Abdominal pain upper [Recovering/Resolving]

NARRATIVE: CASE EVENT DATE: 20141003
